FAERS Safety Report 7428880-6 (Version None)
Quarter: 2011Q2

REPORT INFORMATION
  Report Type: 
  Country: None (occurrence: None)
  Receive Date: 20110421
  Receipt Date: 20110414
  Transmission Date: 20111010
  Serious: Yes (Other)
  Sender: FDA-Public Use
  Company Number: JP-B.I. PHARMACEUTICALS,INC./RIDGEFIELD-2011-BP-10667NB

PATIENT
  Age: 87 Year

DRUGS (6)
  1. MADOPAR [Concomitant]
     Route: 065
  2. DROXIDOPA [Concomitant]
     Route: 048
  3. LIVALO [Concomitant]
     Dosage: 1 MG
     Route: 048
  4. BONALON 5MG [Concomitant]
     Route: 048
  5. MICARDIS [Suspect]
     Indication: HYPERTENSION
     Dosage: 40 MG
     Route: 048
  6. RISPERDAL [Concomitant]
     Route: 048

REACTIONS (2)
  - LOSS OF CONSCIOUSNESS [None]
  - HYPOTENSION [None]
